FAERS Safety Report 16664717 (Version 8)
Quarter: 2021Q4

REPORT INFORMATION
  Report Type: Report from Study
  Country: US (occurrence: US)
  Receive Date: 20190803
  Receipt Date: 20211218
  Transmission Date: 20220303
  Serious: Yes (Other)
  Sender: FDA-Public Use
  Company Number: PHEH2019US031338

PATIENT
  Age: 36 Year
  Sex: Female
  Weight: 65.77 kg

DRUGS (9)
  1. GILENYA [Suspect]
     Active Substance: FINGOLIMOD HYDROCHLORIDE
     Indication: Multiple sclerosis
     Dosage: 0.5 MG, QD
     Route: 048
     Dates: start: 201506, end: 20190712
  2. ZYRTEC [Concomitant]
     Active Substance: CETIRIZINE HYDROCHLORIDE
     Indication: Hypersensitivity
     Dosage: 10 MG, QD
     Route: 048
     Dates: start: 2002
  3. VITAMIN D NOS [Concomitant]
     Active Substance: VITAMIN D NOS
     Indication: Multiple sclerosis
     Dosage: 5000 IU, QD
     Route: 048
     Dates: start: 2018
  4. ZOLOFT [Concomitant]
     Active Substance: SERTRALINE HYDROCHLORIDE
     Indication: Anxiety
     Dosage: 75 MG, QD
     Route: 048
     Dates: start: 2008
  5. ZOLOFT [Concomitant]
     Active Substance: SERTRALINE HYDROCHLORIDE
     Indication: Depression
  6. VITAMINS [Concomitant]
     Active Substance: VITAMINS
     Indication: Pregnancy
     Dosage: UNK
     Route: 048
     Dates: start: 2017
  7. VITAMINS [Concomitant]
     Active Substance: VITAMINS
     Indication: Iron deficiency
  8. FISH OIL [Concomitant]
     Active Substance: FISH OIL
     Indication: Pregnancy
     Dosage: 480 MG, QD
     Route: 048
     Dates: start: 20190720
  9. CYTOTEC [Concomitant]
     Active Substance: MISOPROSTOL
     Indication: Abortion spontaneous
     Dosage: UNK
     Route: 065
     Dates: start: 20190904

REACTIONS (2)
  - Abortion spontaneous [Recovered/Resolved]
  - Maternal exposure during pregnancy [Unknown]

NARRATIVE: CASE EVENT DATE: 20190905
